FAERS Safety Report 7700272-1 (Version None)
Quarter: 2011Q3

REPORT INFORMATION
  Report Type: 
  Country: None (occurrence: None)
  Receive Date: 20110822
  Receipt Date: 20110811
  Transmission Date: 20111222
  Serious: Yes (Other)
  Sender: FDA-Public Use
  Company Number: GB-US-EMD SERONO, INC.-7076984

PATIENT
  Sex: Male

DRUGS (1)
  1. REBIF [Suspect]
     Indication: RELAPSING-REMITTING MULTIPLE SCLEROSIS
     Route: 058
     Dates: start: 20110622

REACTIONS (7)
  - SUICIDAL BEHAVIOUR [None]
  - NAUSEA [None]
  - DRUG ADMINISTRATION ERROR [None]
  - MOOD SWINGS [None]
  - HEADACHE [None]
  - INFLUENZA LIKE ILLNESS [None]
  - ANXIETY [None]
